FAERS Safety Report 18495856 (Version 1)
Quarter: 2020Q4

REPORT INFORMATION
  Report Type: Spontaneous
  Country: US (occurrence: US)
  Receive Date: 20201112
  Receipt Date: 20201112
  Transmission Date: 20210114
  Serious: Yes (Hospitalization)
  Sender: FDA-Public Use
  Company Number: None

PATIENT
  Age: 11 Year
  Sex: Female

DRUGS (8)
  1. TADALAFIL. [Suspect]
     Active Substance: TADALAFIL
     Indication: PULMONARY ARTERIAL HYPERTENSION
     Route: 048
     Dates: start: 20200217
  2. VITAMIN C TAB 250MG [Concomitant]
  3. FUROSEMIDE 20MG [Concomitant]
     Active Substance: FUROSEMIDE
  4. GUANFACINE TAB 3MG ER [Concomitant]
  5. SPIRONOLACTONE TAB 50MG [Concomitant]
     Active Substance: SPIRONOLACTONE
  6. SILDENAFIL TAB 20MG [Concomitant]
     Active Substance: SILDENAFIL
  7. CYPROHEPTAD TAB 4MG [Concomitant]
  8. OMEPRAZOLE CAP 20MG [Concomitant]
     Active Substance: OMEPRAZOLE

REACTIONS (1)
  - Infection [None]

NARRATIVE: CASE EVENT DATE: 20201001
